FAERS Safety Report 8512198-4 (Version None)
Quarter: 2012Q2

REPORT INFORMATION
  Report Type: 
  Country: None (occurrence: None)
  Receive Date: 20120405
  Receipt Date: 20080930
  Transmission Date: 20120825
  Serious: Yes (Hospitalization, Other)
  Sender: FDA-Public Use
  Company Number: PHEH2008US08717

PATIENT
  Age: 69 Year
  Sex: Female
  Weight: 98.9 kg

DRUGS (11)
  1. DESONIDE [Concomitant]
  2. FISH OIL (FISH OIL) [Concomitant]
  3. CRESTOR [Concomitant]
  4. CALCIUM CARBONATE [Concomitant]
  5. RECLAST [Suspect]
     Indication: OSTEOPOROSIS
     Dosage: 5 MG, ONCE/SINGLE, INTRAVENOUS
     Route: 042
     Dates: start: 20071023, end: 20071023
  6. ACIDOPHILUS ^ZYMA^ (LACTOBAVILLUS ACIDOPHILUS) [Concomitant]
  7. CALCIUM (CALCIIUM) [Concomitant]
  8. LANTUS [Concomitant]
  9. NABUMETONE [Concomitant]
  10. IRON (IRON) [Concomitant]
  11. WARFARIN SODIUM [Concomitant]

REACTIONS (1)
  - ATRIAL FIBRILLATION [None]
